FAERS Safety Report 5017542-0 (Version None)
Quarter: 2006Q2

REPORT INFORMATION
  Report Type: 
  Country: None (occurrence: None)
  Receive Date: 20060525
  Receipt Date: 20060503
  Transmission Date: 20061013
  Serious: Yes (Death)
  Sender: FDA-Public Use
  Company Number: US200604000998

PATIENT
  Age: 86 Year
  Sex: Female

DRUGS (3)
  1. FORTEO [Suspect]
     Indication: OSTEOPOROSIS
     Dosage: 20 UG, DAILY (1/D)
     Dates: start: 20050901, end: 20060314
  2. COUMADIN [Concomitant]
  3. FORTEO PEN (FORTEO PEN) [Concomitant]

REACTIONS (1)
  - SUBARACHNOID HAEMORRHAGE [None]
